FAERS Safety Report 6904867-4 (Version None)
Quarter: 2010Q3

REPORT INFORMATION
  Report Type: 
  Country: None (occurrence: None)
  Receive Date: 20100804
  Receipt Date: 20090728
  Transmission Date: 20110219
  Serious: No
  Sender: FDA-Public Use
  Company Number: US-PFIZER INC-2009220818

PATIENT
  Sex: Female
  Weight: 68.027 kg

DRUGS (4)
  1. LYRICA [Suspect]
     Indication: PAIN
     Dates: start: 20060101, end: 20071201
  2. NEURONTIN [Suspect]
     Indication: PAIN
  3. CRESTOR [Concomitant]
  4. PREMPRO [Concomitant]

REACTIONS (1)
  - MEMORY IMPAIRMENT [None]
